FAERS Safety Report 5109783-9 (Version None)
Quarter: 2006Q3

REPORT INFORMATION
  Report Type: 
  Country: None (occurrence: None)
  Receive Date: 20060915
  Receipt Date: 20060905
  Transmission Date: 20061208
  Serious: Yes (Other)
  Sender: FDA-Public Use
  Company Number: 2006106070

PATIENT
  Sex: Female

DRUGS (3)
  1. MARAX [Suspect]
     Indication: ASTHMA
     Dosage: (1 D), ORAL
     Route: 048
     Dates: start: 19960801
  2. FLUNITRAZEPAM (FLUNITRAZEPAM) [Concomitant]
  3. CLONAZEPAM [Concomitant]

REACTIONS (1)
  - HYPERTENSION [None]
